FAERS Safety Report 6874685-4 (Version None)
Quarter: 2010Q3

REPORT INFORMATION
  Report Type: 
  Country: None (occurrence: None)
  Receive Date: 20100722
  Receipt Date: 20100722
  Transmission Date: 20110219
  Serious: Yes (Hospitalization, Other)
  Sender: FDA-Public Use
  Company Number: 2010002693

PATIENT
  Sex: Male

DRUGS (17)
  1. TARCEVA [Suspect]
     Indication: LUNG CARCINOMA CELL TYPE UNSPECIFIED STAGE I
     Dosage: 150 MG, QD, ORAL
     Route: 048
     Dates: start: 20100628
  2. HYDROCODONE BITARTRATE [Concomitant]
  3. ALPRAZOLAM [Concomitant]
  4. BACLOFEN [Concomitant]
  5. CALMOSEPTINE [Concomitant]
  6. CELEXA [Concomitant]
  7. COLACE (DOCUSATE SODIUM) [Concomitant]
  8. WARFARIN SODIUM [Concomitant]
  9. FUROSEMIDE [Concomitant]
  10. GABAPENTIN [Concomitant]
  11. LOPID [Concomitant]
  12. MUCINEX [Concomitant]
  13. PREDNISONE [Concomitant]
  14. SERADEX [Concomitant]
  15. ULTRAM [Concomitant]
  16. MAXIDE (DYAZIDE) [Concomitant]
  17. TRICOR [Concomitant]

REACTIONS (2)
  - RASH [None]
  - RESPIRATORY DISTRESS [None]
